FAERS Safety Report 7660008 (Version 8)
Quarter: 2015Q4

REPORT INFORMATION
  Report Type: Spontaneous
  Country: US (occurrence: US)
  Receive Date: 20101108
  Receipt Date: 20151207
  Transmission Date: 20160305
  Serious: Yes (Hospitalization, Other)
  Sender: FDA-Public Use
  Company Number: US-BAYER-201025618NA

PATIENT
  Age: 27 Year
  Sex: Female
  Weight: 79 kg

DRUGS (62)
  1. ALPRAZOLAM. [Concomitant]
     Active Substance: ALPRAZOLAM
     Indication: ANXIETY
     Dosage: 0.5 MG, UNK
     Dates: start: 2006
  2. LUPRON [Concomitant]
     Active Substance: LEUPROLIDE ACETATE
     Dosage: UNK
     Dates: start: 200611
  3. REQUIP [Concomitant]
     Active Substance: ROPINIROLE HYDROCHLORIDE
     Indication: RESTLESS LEGS SYNDROME
     Dosage: 0.25 MG, UNK
     Dates: start: 2006
  4. SYNTHROID [Concomitant]
     Active Substance: LEVOTHYROXINE SODIUM
     Indication: THYROID DISORDER
     Dosage: 75 UNK, UNK
  5. RENAGEL [SEVELAMER HYDROCHLORIDE] [Concomitant]
  6. CLONIDINE. [Concomitant]
     Active Substance: CLONIDINE
     Dosage: 0.2 MG, UNK
     Dates: start: 2006
  7. IMMUNOGLOBULIN [Concomitant]
     Active Substance: HUMAN IMMUNOGLOBULIN G
     Indication: IMMUNE SYSTEM DISORDER
     Route: 042
  8. LASIX [Concomitant]
     Active Substance: FUROSEMIDE
     Dosage: 40 MG, UNK
     Dates: start: 2006
  9. PHENAZOPYRIDINE. [Concomitant]
     Active Substance: PHENAZOPYRIDINE
     Dosage: 100 MG, UNK
     Dates: start: 2007
  10. MYFORTIC [Concomitant]
     Active Substance: MYCOPHENOLATE SODIUM
  11. TOPROL XL [Concomitant]
     Active Substance: METOPROLOL SUCCINATE
  12. VINCRISTINE [Concomitant]
     Active Substance: VINCRISTINE
  13. MORPHINE [Concomitant]
     Active Substance: MORPHINE
  14. PREDNISONE. [Concomitant]
     Active Substance: PREDNISONE
  15. EPOGEN [Concomitant]
     Active Substance: ERYTHROPOIETIN
     Indication: RED BLOOD CELL ABNORMALITY
     Dosage: UNK
     Dates: start: 2006
  16. HECTOROL [Concomitant]
     Active Substance: DOXERCALCIFEROL
     Indication: PARATHYROID DISORDER
     Dosage: 2.5 MG, UNK
     Dates: start: 2007
  17. NITROFURANTOIN. [Concomitant]
     Active Substance: NITROFURANTOIN
     Dosage: 100 MG, UNK
     Dates: start: 2007
  18. NITROGLYCERIN. [Concomitant]
     Active Substance: NITROGLYCERIN
     Dosage: 0.4 MG/HR, UNK
     Dates: start: 2006
  19. PERCOCET [Concomitant]
     Active Substance: ACETAMINOPHEN\OXYCODONE HYDROCHLORIDE
     Indication: PAIN
     Dosage: UNK
     Dates: start: 2006
  20. TRAMADOL HYDROCHLORIDE. [Concomitant]
     Active Substance: TRAMADOL HYDROCHLORIDE
     Dosage: 50 MG, UNK
     Dates: start: 2006
  21. UROCIT-K [Concomitant]
     Active Substance: POTASSIUM CITRATE
     Dosage: 10 MEQ, UNK
     Dates: start: 2006
  22. PROGRAF [Concomitant]
     Active Substance: TACROLIMUS\TACROLIMUS ANHYDROUS
  23. DILTIAZEM [Concomitant]
     Active Substance: DILTIAZEM
  24. PHENTERMINE. [Concomitant]
     Active Substance: PHENTERMINE
     Indication: WEIGHT DECREASED
     Dosage: LATE DEC-2005 FOR APPROXIMATELY 3 WEEKS
  25. XANAX [Concomitant]
     Active Substance: ALPRAZOLAM
  26. FOLATE SODIUM [Concomitant]
     Active Substance: FOLATE SODIUM
  27. YASMIN [Suspect]
     Active Substance: DROSPIRENONE\ETHINYL ESTRADIOL
     Dosage: UNK
     Route: 048
     Dates: start: 200104, end: 200401
  28. CARTIA XT [Concomitant]
     Active Substance: DILTIAZEM HYDROCHLORIDE
     Dosage: 120 MG, UNK
     Dates: start: 2006
  29. CEPHALEXIN. [Concomitant]
     Active Substance: CEPHALEXIN
     Dosage: 500 MG, UNK
     Dates: start: 2006
  30. KEPPRA [Concomitant]
     Active Substance: LEVETIRACETAM
     Dosage: 500 MG, UNK
     Dates: start: 2006
  31. LEXAPRO [Concomitant]
     Active Substance: ESCITALOPRAM OXALATE
     Indication: DEPRESSION
     Dosage: 10 MG, UNK
     Dates: start: 2006
  32. SENSIPAR [Concomitant]
     Active Substance: CINACALCET HYDROCHLORIDE
     Indication: PARATHYROID DISORDER
     Dosage: 30 MG, UNK
     Dates: start: 2006
  33. SOLU-MEDROL [Concomitant]
     Active Substance: METHYLPREDNISOLONE SODIUM SUCCINATE
  34. NORVASC [Concomitant]
     Active Substance: AMLODIPINE BESYLATE
  35. DIOVAN [Concomitant]
     Active Substance: VALSARTAN
     Indication: BLOOD PRESSURE ABNORMAL
     Dosage: 320 MG, UNK
     Dates: start: 2006
  36. RENAGEL [Concomitant]
     Active Substance: SEVELAMER HYDROCHLORIDE
     Indication: BLOOD PHOSPHORUS INCREASED
     Dosage: 800 MG, UNK
     Dates: start: 2006
  37. VIGAMOX [Concomitant]
     Active Substance: MOXIFLOXACIN HYDROCHLORIDE
     Dosage: 0.5 %, UNK
     Dates: start: 2006
  38. ZOLOFT [Concomitant]
     Active Substance: SERTRALINE HYDROCHLORIDE
  39. NUVARING [Concomitant]
     Active Substance: ETHINYL ESTRADIOL\ETONOGESTREL
     Dosage: UNK
     Dates: start: 200605, end: 200611
  40. CYMBALTA [Concomitant]
     Active Substance: DULOXETINE HYDROCHLORIDE
     Dosage: 60 MG, UNK
     Dates: start: 2006
  41. DOXAZOSIN MESYLATE. [Concomitant]
     Active Substance: DOXAZOSIN MESYLATE
     Dosage: 2 MG, UNK
     Dates: start: 2005
  42. HYDROMORPHONE [Concomitant]
     Active Substance: HYDROMORPHONE
     Dosage: 2 MG, UNK
     Dates: start: 2007
  43. LACTULOSE. [Concomitant]
     Active Substance: LACTULOSE
     Dosage: 10 UNK, UNK
     Dates: start: 2006
  44. ASPIRIN. [Concomitant]
     Active Substance: ASPIRIN
  45. TOPAMAX [Concomitant]
     Active Substance: TOPIRAMATE
     Indication: WEIGHT DECREASED
     Dosage: LATE DEC-2005 FOR APPROXIMATELY 3 WEEKS.
  46. AMOXICILLIN. [Concomitant]
     Active Substance: AMOXICILLIN
     Dosage: 500 MG, UNK
  47. ORABASE [Concomitant]
     Active Substance: CARBOXYMETHYLCELLULOSE SODIUM\GELATIN\PECTIN
     Indication: MOUTH ULCERATION
  48. LABETALOL [Concomitant]
     Active Substance: LABETALOL\LABETALOL HYDROCHLORIDE
  49. MINOXIDIL. [Concomitant]
     Active Substance: MINOXIDIL
  50. HYDRALAZINE [Concomitant]
     Active Substance: HYDRALAZINE HYDROCHLORIDE
  51. CEFUROXIME AXETIL. [Concomitant]
     Active Substance: CEFUROXIME AXETIL
     Dosage: 250 MG, UNK
     Dates: start: 2005
  52. FLUCONAZOLE. [Concomitant]
     Active Substance: FLUCONAZOLE
     Dosage: 100 MG, UNK
     Dates: start: 2006
  53. PROTONIX [Concomitant]
     Active Substance: PANTOPRAZOLE SODIUM
     Indication: GASTROOESOPHAGEAL REFLUX DISEASE
     Dosage: 40 MG, UNK
     Dates: start: 2006
  54. VENTOLIN HFA [Concomitant]
     Active Substance: ALBUTEROL SULFATE
     Dosage: 90 UNK, UNK
     Dates: start: 2007
  55. ALBUMIN [Concomitant]
     Active Substance: ALBUMIN (HUMAN)
  56. FERROUS SULFATE [Concomitant]
     Active Substance: FERROUS SULFATE\FERROUS SULFATE, DRIED
  57. YASMIN [Suspect]
     Active Substance: DROSPIRENONE\ETHINYL ESTRADIOL
     Dosage: UNK
     Route: 048
     Dates: start: 200501, end: 200601
  58. ATENOLOL. [Concomitant]
     Active Substance: ATENOLOL
     Dosage: 25 MG, UNK
     Dates: start: 2007
  59. DICLOXACILLIN [Concomitant]
     Active Substance: DICLOXACILLIN
     Dosage: 500 MG, UNK
     Dates: start: 2007
  60. LEVAQUIN [Concomitant]
     Active Substance: LEVOFLOXACIN
     Dosage: 250 MG, UNK
     Dates: start: 2006
  61. POTASSIUM [POTASSIUM] [Concomitant]
  62. SEPTRA DS [Concomitant]
     Active Substance: SULFAMETHOXAZOLE\TRIMETHOPRIM
     Dosage: UNK
     Dates: start: 2006

REACTIONS (11)
  - Cholelithiasis [Recovered/Resolved]
  - Nephrolithiasis [None]
  - Haemolytic uraemic syndrome [Recovered/Resolved]
  - Generalised tonic-clonic seizure [Recovered/Resolved]
  - Cerebrovascular accident [None]
  - Cerebrovascular accident [None]
  - Cholecystitis chronic [None]
  - Generalised tonic-clonic seizure [Recovered/Resolved]
  - Hypertension [Recovered/Resolved]
  - Renal failure [Recovered/Resolved]
  - Cardiac failure congestive [None]

NARRATIVE: CASE EVENT DATE: 2006
